FAERS Safety Report 9753984 (Version 1)
Quarter: 2013Q4

REPORT INFORMATION
  Report Type: Spontaneous
  Country: US (occurrence: US)
  Receive Date: 20131213
  Receipt Date: 20131213
  Transmission Date: 20140711
  Serious: No
  Sender: FDA-Public Use
  Company Number: US-GLAXOSMITHKLINE-A1004463A

PATIENT
  Age: 36 Year
  Sex: Male

DRUGS (1)
  1. NICORETTE NICOTINE POLACRILEX LOZENGE [Suspect]
     Indication: PRODUCT USED FOR UNKNOWN INDICATION

REACTIONS (2)
  - Oral mucosal discolouration [Unknown]
  - Oral disorder [Unknown]
